FAERS Safety Report 19902692 (Version 1)
Quarter: 2021Q3

REPORT INFORMATION
  Report Type: Spontaneous
  Country: CA (occurrence: CA)
  Receive Date: 20210930
  Receipt Date: 20210930
  Transmission Date: 20211014
  Serious: Yes (Other)
  Sender: FDA-Public Use
  Company Number: CA-TEVA-2021-CA-1959083

PATIENT
  Age: 61 Year
  Sex: Female

DRUGS (13)
  1. PREDNISONE. [Concomitant]
     Active Substance: PREDNISONE
  2. BUPROPION. [Concomitant]
     Active Substance: BUPROPION
     Route: 065
  3. RANITIDINE. [Concomitant]
     Active Substance: RANITIDINE
  4. BI 1744+TIOTROPIUM BROMIDE [Concomitant]
     Active Substance: OLODATEROL HYDROCHLORIDE\TIOTROPIUM BROMIDE MONOHYDRATE
  5. MORPHINE [Concomitant]
     Active Substance: MORPHINE
  6. SALBUTAMOL [Concomitant]
     Active Substance: ALBUTEROL
  7. VITAMIN B12 [Concomitant]
     Active Substance: CYANOCOBALAMIN
  8. METFORMIN [Concomitant]
     Active Substance: METFORMIN HYDROCHLORIDE
  9. NICOTINE TRANSDERMAL PATCH 21MG [Concomitant]
  10. ROSUVASTATIN. [Concomitant]
     Active Substance: ROSUVASTATIN
     Route: 058
  11. ZYBAN [Interacting]
     Active Substance: BUPROPION HYDROCHLORIDE
     Route: 065
  12. ASA [Concomitant]
     Active Substance: ASPIRIN
     Route: 065
  13. LEVOFLOXACIN. [Suspect]
     Active Substance: LEVOFLOXACIN
     Route: 065

REACTIONS (2)
  - Potentiating drug interaction [Recovering/Resolving]
  - Seizure [Recovering/Resolving]
